FAERS Safety Report 8934057 (Version 1)
Quarter: 2012Q4

REPORT INFORMATION
  Report Type: 
  Country: GB (occurrence: GB)
  Receive Date: 20121129
  Receipt Date: 20121129
  Transmission Date: 20130627
  Serious: Yes (Hospitalization, Other)
  Sender: FDA-Public Use
  Company Number: GB-PFIZER INC-2012296763

PATIENT
  Age: 26 Year
  Sex: Female
  Weight: 79.9 kg

DRUGS (13)
  1. GENOTROPIN [Suspect]
     Dosage: 1 mg, 1x/day,7 injections/week
     Route: 058
     Dates: start: 20070530
  2. CLOBAZAM [Concomitant]
     Indication: EPILEPSY
     Dosage: UNK
     Dates: start: 20000317
  3. CLOBAZAM [Concomitant]
     Indication: CONVULSIONS
  4. CLOBAZAM [Concomitant]
     Indication: SEIZURE
  5. LAMOTRIGINE [Concomitant]
     Indication: EPILEPSY
     Dosage: UNK
     Dates: start: 20000317
  6. LAMOTRIGINE [Concomitant]
     Indication: CONVULSIONS
  7. LAMOTRIGINE [Concomitant]
     Indication: SEIZURE
  8. SANOMIGRAN [Concomitant]
     Indication: MIGRAINE
     Dosage: UNK
     Dates: start: 20010719
  9. LOESTRIN [Concomitant]
     Indication: CONTRACEPTION
     Dosage: UNK
     Dates: start: 20040420
  10. LOESTRIN [Concomitant]
     Indication: MENSTRUAL DISORDER
  11. HYDROCORTISONE [Concomitant]
     Indication: ACTH DECREASED
     Dosage: UNK
     Dates: start: 20031215
  12. THYROXINE [Concomitant]
     Indication: THYROID DISORDER
     Dosage: UNK
     Dates: start: 20040908
  13. THYROXINE [Concomitant]
     Indication: PRIMARY HYPOTHYROIDISM

REACTIONS (1)
  - Shunt occlusion [Unknown]
